FAERS Safety Report 10488109 (Version 2)
Quarter: 2014Q4

REPORT INFORMATION
  Report Type: Spontaneous
  Country: GB (occurrence: GB)
  Receive Date: 20141002
  Receipt Date: 20141002
  Transmission Date: 20150528
  Serious: Yes (Other)
  Sender: FDA-Public Use
  Company Number: GB-ABBVIE-14K-167-1239367-00

PATIENT
  Age: 33 Year
  Sex: Female
  Weight: 67 kg

DRUGS (6)
  1. VENTOLIN [Concomitant]
     Active Substance: ALBUTEROL SULFATE
     Indication: ASTHMA
     Route: 055
  2. HUMIRA [Suspect]
     Active Substance: ADALIMUMAB
     Indication: CROHN^S DISEASE
     Dosage: LOADING DOSE
     Route: 058
     Dates: start: 20140319, end: 20140319
  3. HUMIRA [Suspect]
     Active Substance: ADALIMUMAB
     Dates: start: 201404, end: 201404
  4. OESTROGEN [Concomitant]
     Indication: CONTRACEPTION
     Dosage: CONTRACEPTIVE PILL
     Route: 048
  5. NORETHINDRONE AND ETHINYL ESTRADIOL [Concomitant]
     Active Substance: ETHINYL ESTRADIOL\NORETHINDRONE
     Indication: CONTRACEPTION
     Route: 048
  6. PREDNISOLONE. [Concomitant]
     Active Substance: PREDNISOLONE
     Indication: CROHN^S DISEASE
     Route: 048
     Dates: start: 20140710

REACTIONS (17)
  - Haemoglobin decreased [Recovered/Resolved]
  - Blood urea increased [Unknown]
  - Amylase increased [Unknown]
  - Red blood cell count decreased [Unknown]
  - Venoocclusive liver disease [Unknown]
  - Haemoglobin decreased [Recovered/Resolved]
  - Hepatitis acute [Unknown]
  - C-reactive protein increased [Unknown]
  - Blood fibrinogen increased [Unknown]
  - Renal disorder [Unknown]
  - Liver function test abnormal [Not Recovered/Not Resolved]
  - Haematocrit decreased [Unknown]
  - Serum ferritin decreased [Unknown]
  - Colitis [Unknown]
  - Blood immunoglobulin M increased [Unknown]
  - Mean cell haemoglobin concentration increased [Unknown]
  - Blood creatinine increased [Unknown]

NARRATIVE: CASE EVENT DATE: 2014
